FAERS Safety Report 17354625 (Version 1)
Quarter: 2020Q1

REPORT INFORMATION
  Report Type: Spontaneous
  Country: US (occurrence: US)
  Receive Date: 20200130
  Receipt Date: 20200130
  Transmission Date: 20200409
  Serious: No
  Sender: FDA-Public Use
  Company Number: None

PATIENT
  Age: 76 Year
  Sex: Male
  Weight: 83.7 kg

DRUGS (7)
  1. SILDENAFIL. [Concomitant]
     Active Substance: SILDENAFIL
  2. ASPIRIN. [Concomitant]
     Active Substance: ASPIRIN
  3. REPATHA [Suspect]
     Active Substance: EVOLOCUMAB
  4. ATENOLOL. [Concomitant]
     Active Substance: ATENOLOL
  5. LISINOPRIL. [Concomitant]
     Active Substance: LISINOPRIL
  6. IMBRUVICA [Concomitant]
     Active Substance: IBRUTINIB
  7. ZETIA [Concomitant]
     Active Substance: EZETIMIBE

REACTIONS (1)
  - Memory impairment [None]

NARRATIVE: CASE EVENT DATE: 20200130
